FAERS Safety Report 5893028-6 (Version None)
Quarter: 2008Q3

REPORT INFORMATION
  Report Type: 
  Country: None (occurrence: None)
  Receive Date: 20080923
  Receipt Date: 20071008
  Transmission Date: 20090109
  Serious: No
  Sender: FDA-Public Use
  Company Number: US-ASTRAZENECA-2007UW01964

PATIENT
  Age: 44 Year
  Sex: Female
  Weight: 90.9 kg

DRUGS (26)
  1. SEROQUEL [Suspect]
     Indication: SLEEP DISORDER
     Dosage: 25 MG TO 300 MG
     Route: 048
     Dates: start: 20001020, end: 20060713
  2. ABILIFY [Concomitant]
     Dates: start: 20050428
  3. GEODON [Concomitant]
     Dates: start: 20060811
  4. HALDOL [Concomitant]
     Dates: start: 20060731
  5. THORAZINE [Concomitant]
     Dates: start: 19710101
  6. ZYPREXA [Concomitant]
     Dosage: 2.5 MG TO 10 MG
     Dates: start: 20000119, end: 20001011
  7. ALBUTEROL [Concomitant]
  8. EFFEXOR XR [Concomitant]
  9. PROZAC [Concomitant]
  10. LORAZEPAM [Concomitant]
  11. IBUPROFEN [Concomitant]
  12. ATIVAN [Concomitant]
  13. FERROUS SULFATE TAB [Concomitant]
  14. NYSTATIN [Concomitant]
  15. NASONEX [Concomitant]
  16. SILTUSSIN [Concomitant]
  17. APAP TAB [Concomitant]
  18. ZITHROMAX [Concomitant]
  19. FLUOXETINE [Concomitant]
  20. CLONAZEPAM [Concomitant]
  21. FLOVENT [Concomitant]
  22. SINGULAIR [Concomitant]
  23. PENICILLIN VK [Concomitant]
  24. QUINAPRIL [Concomitant]
  25. ACTOS [Concomitant]
  26. LAMICTAL [Concomitant]

REACTIONS (4)
  - BLOOD CHOLESTEROL INCREASED [None]
  - OBESITY [None]
  - PALPITATIONS [None]
  - TYPE 2 DIABETES MELLITUS [None]
